FAERS Safety Report 6984591-2 (Version None)
Quarter: 2010Q3

REPORT INFORMATION
  Report Type: 
  Country: None (occurrence: None)
  Receive Date: 20100915
  Receipt Date: 20100905
  Transmission Date: 20110219
  Serious: Yes (Other)
  Sender: FDA-Public Use
  Company Number: AT-PFIZER INC-2010112529

PATIENT
  Sex: Female

DRUGS (2)
  1. DOSTINEX [Suspect]
     Indication: HYPERPROLACTINAEMIA
     Dosage: 0.25 MG, EVERY FOURTH DAY
     Route: 048
     Dates: start: 20100701
  2. DOSTINEX [Suspect]
     Dosage: 0.25 MG, WEEKLY
     Dates: start: 20100101

REACTIONS (7)
  - DIZZINESS [None]
  - DYSMENORRHOEA [None]
  - FAECES HARD [None]
  - FATIGUE [None]
  - OVULATION PAIN [None]
  - PERIPHERAL COLDNESS [None]
  - PRESYNCOPE [None]
